FAERS Safety Report 13922138 (Version 1)
Quarter: 2017Q3

REPORT INFORMATION
  Report Type: Spontaneous
  Country: DE (occurrence: DE)
  Receive Date: 20170830
  Receipt Date: 20170830
  Transmission Date: 20171127
  Serious: Yes (Hospitalization)
  Sender: FDA-Public Use
  Company Number: DE-ASTRAZENECA-2017SE86907

PATIENT
  Age: 65 Year
  Sex: Male

DRUGS (1)
  1. BRETARIS [Suspect]
     Active Substance: ACLIDINIUM BROMIDE
     Dosage: 322.0UG UNKNOWN
     Route: 055

REACTIONS (2)
  - Dyspnoea [Unknown]
  - Device malfunction [Unknown]
